FAERS Safety Report 16891558 (Version 1)
Quarter: 2019Q4

REPORT INFORMATION
  Report Type: Spontaneous
  Country: US (occurrence: US)
  Receive Date: 20190812
  Receipt Date: 20190812
  Transmission Date: 20200122
  Serious: Yes (Life-Threatening)
  Sender: FDA-Public Use
  Company Number: None

PATIENT
  Age: 57 Year
  Sex: Female
  Weight: 53.52 kg

DRUGS (4)
  1. IBYPROPHEN [Concomitant]
  2. HYDROXYCHLOROQUINE SULFATE 200MG TABLETS, USP [Suspect]
     Active Substance: HYDROXYCHLOROQUINE SULFATE
     Indication: SJOGREN^S SYNDROME
     Dosage: ?          QUANTITY:200 MG MILLIGRAM(S);?
     Route: 048
     Dates: start: 20180427, end: 20181005
  3. KEPPRA [Concomitant]
     Active Substance: LEVETIRACETAM
  4. TYLENOL [Concomitant]
     Active Substance: ACETAMINOPHEN

REACTIONS (2)
  - Anxiety [None]
  - Blood caffeine increased [None]
